FAERS Safety Report 6696495-3 (Version None)
Quarter: 2010Q2

REPORT INFORMATION
  Report Type: 
  Country: None (occurrence: None)
  Receive Date: 20100421
  Receipt Date: 20100414
  Transmission Date: 20101027
  Serious: Yes (Other)
  Sender: FDA-Public Use
  Company Number: LTI2010A00048

PATIENT
  Age: 68 Year
  Sex: Male

DRUGS (5)
  1. ACTOS [Suspect]
     Indication: TYPE 2 DIABETES MELLITUS
     Dosage: 30 MG (30 MG, 1 IN 1 D), ORAL
     Route: 048
     Dates: start: 20091124
  2. METFORMIN HCL [Concomitant]
  3. DAONIL (GLIBBNCLAMIDE) [Concomitant]
  4. ACARBOSE [Concomitant]
  5. CREATOR (ROSUVASTATIN CALCIUM) [Concomitant]

REACTIONS (1)
  - HYPERTENSION [None]
